FAERS Safety Report 24234790 (Version 4)
Quarter: 2024Q3

REPORT INFORMATION
  Report Type: Spontaneous
  Country: US (occurrence: US)
  Receive Date: 20240821
  Receipt Date: 20240829
  Transmission Date: 20241017
  Serious: Yes (Other)
  Sender: GILEAD
  Company Number: US-GILEAD-2024-0684705

PATIENT

DRUGS (1)
  1. YESCARTA [Suspect]
     Active Substance: AXICABTAGENE CILOLEUCEL
     Indication: Follicular lymphoma
     Dosage: UNK, INFUSED 2.5 YEARS AGO; 2022
     Route: 065
     Dates: start: 202204, end: 202204

REACTIONS (1)
  - Peripheral T-cell lymphoma unspecified [Unknown]
